FAERS Safety Report 9602797 (Version 1)
Quarter: 2013Q4

REPORT INFORMATION
  Report Type: Spontaneous
  Country: US (occurrence: None)
  Receive Date: 20131003
  Receipt Date: 20131003
  Transmission Date: 20140711
  Serious: Yes (Life-Threatening, Hospitalization)
  Sender: FDA-Public Use
  Company Number: SYM-2013-11099

PATIENT
  Age: 51 Year
  Sex: Male

DRUGS (4)
  1. FLECAINIDE [Suspect]
     Indication: PRODUCT USED FOR UNKNOWN INDICATION
     Route: 048
  2. ALPROZOLAM (ALPRAZOLAM) (ALPRAZOLAM) [Concomitant]
  3. LISINOPRIL (LISINOPRIL) (LISINOPRIL) [Concomitant]
  4. ASPIRIN (ACETYLYSALICYLIC ACID) (ACETYLSALICYLIC ACID) [Concomitant]

REACTIONS (5)
  - Atrioventricular block first degree [None]
  - Electrocardiogram QT prolonged [None]
  - Blood potassium decreased [None]
  - Drug level increased [None]
  - Intentional drug misuse [None]
